FAERS Safety Report 21758334 (Version 3)
Quarter: 2023Q1

REPORT INFORMATION
  Report Type: Other
  Country: US (occurrence: US)
  Receive Date: 20221221
  Receipt Date: 20230131
  Transmission Date: 20230418
  Serious: No
  Sender: FDA-Public Use
  Company Number: US-GBT-018780

PATIENT
  Age: 29 Year
  Sex: Female

DRUGS (3)
  1. OXBRYTA [Suspect]
     Active Substance: VOXELOTOR
     Indication: Sickle cell disease
     Route: 048
  2. OXBRYTA [Suspect]
     Active Substance: VOXELOTOR
     Indication: Sickle cell disease
     Route: 048
     Dates: start: 202209
  3. HYDROXYUREA [Concomitant]
     Active Substance: HYDROXYUREA
     Indication: Product used for unknown indication

REACTIONS (3)
  - Gastrointestinal disorder [Unknown]
  - Intentional product use issue [Unknown]
  - Diarrhoea [Not Recovered/Not Resolved]

NARRATIVE: CASE EVENT DATE: 20221001
